FAERS Safety Report 5305732-9 (Version None)
Quarter: 2007Q2

REPORT INFORMATION
  Report Type: 
  Country: None (occurrence: None)
  Receive Date: 20070416
  Receipt Date: 20070405
  Transmission Date: 20071010
  Serious: Yes (Other)
  Sender: FDA-Public Use
  Company Number: 100#03#2007-01072

PATIENT
  Age: 36 Year
  Sex: Female

DRUGS (1)
  1. AZITHROMYCIN [Suspect]
     Indication: ACUTE TONSILLITIS
     Dosage: 500 MG ORAL
     Route: 048
     Dates: start: 20070213, end: 20070215

REACTIONS (1)
  - PHARYNGEAL OEDEMA [None]
